FAERS Safety Report 4377487-6 (Version None)
Quarter: 2004Q2

REPORT INFORMATION
  Report Type: 
  Country: None (occurrence: None)
  Receive Date: 20040609
  Receipt Date: 20040524
  Transmission Date: 20050107
  Serious: Yes (Hospitalization, Other)
  Sender: FDA-Public Use
  Company Number: EWC040539409

PATIENT
  Age: 32 Year
  Sex: Female

DRUGS (14)
  1. OLANZAPINE [Suspect]
     Indication: ANOREXIA
     Dosage: 20 MG/1 DAY
     Dates: start: 20030821, end: 20031006
  2. OLANZAPINE [Suspect]
     Indication: DELUSIONAL DISORDER, UNSPECIFIED TYPE
     Dosage: 20 MG/1 DAY
     Dates: start: 20030821, end: 20031006
  3. MACROGOL [Concomitant]
  4. MULTI-VITAMIN [Concomitant]
  5. CALCIUM CARBONATE [Concomitant]
  6. ESTROGEN W/MEDROXYPROGESTERONE [Concomitant]
  7. POTASSIUM CHLORIDE [Concomitant]
  8. LORAZEPAM [Concomitant]
  9. ZOLPIDEM TARTRATE [Concomitant]
  10. NAPROXEN [Concomitant]
  11. QUETIAPINE FUMARATE [Concomitant]
  12. DIAZEPAM [Concomitant]
  13. LACTULOSE [Concomitant]
  14. SODIUM CITRATE [Concomitant]

REACTIONS (5)
  - ANOREXIA [None]
  - CONDITION AGGRAVATED [None]
  - DELUSIONAL DISORDER, UNSPECIFIED TYPE [None]
  - MALNUTRITION [None]
  - TARDIVE DYSKINESIA [None]
